FAERS Safety Report 6453162-9 (Version None)
Quarter: 2009Q4

REPORT INFORMATION
  Report Type: 
  Country: None (occurrence: None)
  Receive Date: 20091124
  Receipt Date: 20091119
  Transmission Date: 20100525
  Serious: Yes (Hospitalization)
  Sender: FDA-Public Use
  Company Number: US-BRISTOL-MYERS SQUIBB COMPANY-14844716

PATIENT
  Age: 64 Year
  Sex: Female
  Weight: 63 kg

DRUGS (13)
  1. ORENCIA [Suspect]
     Indication: RHEUMATOID ARTHRITIS
     Dosage: INFUSIONS ON 4/13/09, 4/27/09, 5/26/09, 6/22/09, 7/09 AND 8/09
     Route: 042
     Dates: start: 20090331
  2. CATAPRES [Concomitant]
  3. COREG [Concomitant]
  4. PREDNISONE [Concomitant]
     Dosage: 1 - 3 TABS
  5. OMEPRAZOLE [Concomitant]
  6. CARDIAZEM [Concomitant]
  7. LISINOPRIL [Concomitant]
  8. FOLIC ACID [Concomitant]
  9. XANAX [Concomitant]
  10. ACTONEL [Concomitant]
  11. METHOTREXATE [Concomitant]
  12. VITAMIN D [Concomitant]
  13. CALCIUM [Concomitant]
     Dosage: CA 2+

REACTIONS (1)
  - HAEMORRHAGIC STROKE [None]
